FAERS Safety Report 7602629-6 (Version None)
Quarter: 2011Q3

REPORT INFORMATION
  Report Type: 
  Country: None (occurrence: None)
  Receive Date: 20110701
  Receipt Date: 20090923
  Transmission Date: 20111222
  Serious: Yes (Other)
  Sender: FDA-Public Use
  Company Number: SIM_00021_2011

PATIENT
  Sex: Female

DRUGS (1)
  1. EARACHE RELIEF (HOMEOPATHIC) [Suspect]
     Indication: EAR PAIN
     Dosage: (USED ^PERIODICALLY^ FOR ONE MONTH. AURICULAR (OTIC))
     Route: 001
     Dates: start: 20090801

REACTIONS (5)
  - EAR INFECTION [None]
  - TYMPANIC MEMBRANE PERFORATION [None]
  - HAEMOPTYSIS [None]
  - HYPOAESTHESIA ORAL [None]
  - HYPOAESTHESIA TEETH [None]
